FAERS Safety Report 6457778-5 (Version None)
Quarter: 2009Q4

REPORT INFORMATION
  Report Type: 
  Country: None (occurrence: None)
  Receive Date: 20091125
  Receipt Date: 20091117
  Transmission Date: 20100525
  Serious: Yes (Other)
  Sender: FDA-Public Use
  Company Number: BR-PFIZER INC-2009246117

PATIENT
  Sex: Female

DRUGS (1)
  1. CHAMPIX [Suspect]
     Indication: SMOKING CESSATION THERAPY
     Dosage: UNK
     Route: 048

REACTIONS (8)
  - ANXIETY [None]
  - AURICULAR SWELLING [None]
  - DEPRESSED MOOD [None]
  - DEPRESSION [None]
  - EYELID OEDEMA [None]
  - HYPERSENSITIVITY [None]
  - NERVOUSNESS [None]
  - SWELLING FACE [None]
